FAERS Safety Report 8761818 (Version 2)
Quarter: 2012Q4

REPORT INFORMATION
  Report Type: Spontaneous
  Country: ES (occurrence: None)
  Receive Date: 20120823
  Receipt Date: 20120828
  Transmission Date: 20130627
  Serious: Yes (Other)
  Sender: FDA-Public Use
  Company Number: 2012AP002450

PATIENT
  Age: 86 Year
  Sex: Male

DRUGS (7)
  1. LEVOFLOXACIN [Suspect]
     Route: 048
     Dates: start: 20111117, end: 20111117
  2. INSULIN GLARGINE (INSULIN GLARGINE) [Concomitant]
  3. ASPIRIN (ACETYLSALICYLIC ACID) [Concomitant]
  4. OMEPRAZOLE (OMEPRAZOLE) [Concomitant]
  5. IRON (IRON) [Concomitant]
  6. ZOLPIDEM (ZOLPIDEM) [Concomitant]
  7. RISPERIDONE (RISPERIDONE) [Concomitant]

REACTIONS (2)
  - Hypoglycaemia [None]
  - Off label use [None]
